FAERS Safety Report 21662301 (Version 2)
Quarter: 2022Q4

REPORT INFORMATION
  Report Type: Report from Study
  Country: US (occurrence: US)
  Receive Date: 20221130
  Receipt Date: 20221223
  Transmission Date: 20230112
  Serious: Yes (Other)
  Sender: FDA-Public Use
  Company Number: US-TAKEDA-2022TUS090579

PATIENT
  Sex: Female

DRUGS (8)
  1. TEDUGLUTIDE [Suspect]
     Active Substance: TEDUGLUTIDE
     Indication: Short-bowel syndrome
     Dosage: 2.83 MILLIGRAM, QD
     Route: 058
     Dates: start: 202209
  2. TEDUGLUTIDE [Suspect]
     Active Substance: TEDUGLUTIDE
     Indication: Short-bowel syndrome
     Dosage: 2.83 MILLIGRAM, QD
     Route: 058
     Dates: start: 202209
  3. TEDUGLUTIDE [Suspect]
     Active Substance: TEDUGLUTIDE
     Indication: Short-bowel syndrome
     Dosage: 2.83 MILLIGRAM, QD
     Route: 058
     Dates: start: 202209
  4. TEDUGLUTIDE [Suspect]
     Active Substance: TEDUGLUTIDE
     Indication: Short-bowel syndrome
     Dosage: 2.83 MILLIGRAM, QD
     Route: 058
     Dates: start: 202209
  5. TEDUGLUTIDE [Suspect]
     Active Substance: TEDUGLUTIDE
     Dosage: 2.83 MILLIGRAM, QD
     Route: 058
     Dates: start: 20220906
  6. TEDUGLUTIDE [Suspect]
     Active Substance: TEDUGLUTIDE
     Dosage: 2.83 MILLIGRAM, QD
     Route: 058
     Dates: start: 20220906
  7. TEDUGLUTIDE [Suspect]
     Active Substance: TEDUGLUTIDE
     Dosage: 2.83 MILLIGRAM, QD
     Route: 058
     Dates: start: 20220906
  8. TEDUGLUTIDE [Suspect]
     Active Substance: TEDUGLUTIDE
     Dosage: 2.83 MILLIGRAM, QD
     Route: 058
     Dates: start: 20220906

REACTIONS (4)
  - Deep vein thrombosis [Unknown]
  - Dry skin [Unknown]
  - Peripheral swelling [Unknown]
  - Gastroenteritis viral [Recovered/Resolved]
